FAERS Safety Report 21784737 (Version 1)
Quarter: 2022Q4

REPORT INFORMATION
  Report Type: Spontaneous
  Country: US (occurrence: US)
  Receive Date: 20221227
  Receipt Date: 20221227
  Transmission Date: 20230112
  Serious: No
  Sender: FDA-Public Use
  Company Number: US-BAUSCHBL-2022BNL003218

PATIENT
  Age: 72 Year
  Sex: Female
  Weight: 50.848 kg

DRUGS (1)
  1. ZIRGAN [Suspect]
     Active Substance: GANCICLOVIR
     Indication: Oral herpes
     Dosage: 5 DROP (1/12 MILLILITRE) 5 DROPS, UNK
     Route: 047

REACTIONS (5)
  - Inflammation [Recovered/Resolved]
  - Eye irritation [Recovered/Resolved]
  - Expired product administered [Unknown]
  - Product use in unapproved indication [Unknown]
  - Product physical issue [Unknown]

NARRATIVE: CASE EVENT DATE: 20180206
